FAERS Safety Report 5126692-X (Version None)
Quarter: 2006Q4

REPORT INFORMATION
  Report Type: 
  Country: None (occurrence: None)
  Receive Date: 20061012
  Receipt Date: 20061012
  Transmission Date: 20070319
  Serious: Yes (Hospitalization)
  Sender: FDA-Public Use
  Company Number: None

PATIENT
  Age: 69 Year
  Sex: Male
  Weight: 62.5 kg

DRUGS (2)
  1. LINEZOLID [Suspect]
     Indication: MASTOIDITIS
     Dosage: 1200MG, 600MG BID ORAL
     Route: 048
     Dates: start: 20060628, end: 20060712
  2. LINEZOLID [Suspect]
     Indication: STAPHYLOCOCCAL INFECTION
     Dosage: 1200MG, 600MG BID ORAL
     Route: 048
     Dates: start: 20060628, end: 20060712

REACTIONS (2)
  - ANAEMIA [None]
  - THROMBOCYTOPENIA [None]
